FAERS Safety Report 8075647-4 (Version None)
Quarter: 2012Q1

REPORT INFORMATION
  Report Type: 
  Country: None (occurrence: None)
  Receive Date: 20120127
  Receipt Date: 20120119
  Transmission Date: 20120608
  Serious: Yes (Hospitalization)
  Sender: FDA-Public Use
  Company Number: AT-B.I. PHARMACEUTICALS,INC./RIDGEFIELD-2012-AP-00044AP

PATIENT
  Age: 87 Year
  Sex: Female

DRUGS (12)
  1. GLUCOPHAGE [Concomitant]
     Dosage: 1 NR
  2. SPIRONO GENERICUM [Concomitant]
  3. MARCUMAR [Concomitant]
     Dosage: DEPENDING ON JNR
  4. SPIRIVA [Suspect]
     Indication: CHRONIC OBSTRUCTIVE PULMONARY DISEASE
     Route: 055
  5. PANTOPRAZOLE SODIUM [Concomitant]
  6. PASSEDAN [Concomitant]
  7. MADOPAR [Concomitant]
  8. HALCION [Concomitant]
  9. BERODUAL [Concomitant]
     Dosage: IF REQUIRED
  10. DIAMICRON [Concomitant]
  11. LASIX [Concomitant]
  12. ESCITALOPRAM [Concomitant]

REACTIONS (4)
  - DYSGEUSIA [None]
  - URINARY TRACT INFECTION [None]
  - FALL [None]
  - VERTIGO [None]
